FAERS Safety Report 6864633-5 (Version None)
Quarter: 2010Q3

REPORT INFORMATION
  Report Type: 
  Country: None (occurrence: None)
  Receive Date: 20100721
  Receipt Date: 20080531
  Transmission Date: 20110219
  Serious: No
  Sender: FDA-Public Use
  Company Number: US-PFIZER INC-2008027080

PATIENT
  Sex: Female
  Weight: 100.7 kg

DRUGS (7)
  1. CHANTIX [Suspect]
     Indication: SMOKING CESSATION THERAPY
     Dates: start: 20080321
  2. DIGOXIN [Concomitant]
  3. WARFARIN SODIUM [Concomitant]
  4. FLUOXETINE [Concomitant]
  5. VERAPAMIL [Concomitant]
  6. ADVAIR DISKUS 100/50 [Concomitant]
  7. INSULIN [Concomitant]

REACTIONS (4)
  - ABNORMAL DREAMS [None]
  - INSOMNIA [None]
  - NIGHTMARE [None]
  - SLEEP PHASE RHYTHM DISTURBANCE [None]
